FAERS Safety Report 5920459-8 (Version None)
Quarter: 2008Q4

REPORT INFORMATION
  Report Type: 
  Country: None (occurrence: None)
  Receive Date: 20081016
  Receipt Date: 20081009
  Transmission Date: 20090506
  Serious: Yes (Hospitalization)
  Sender: FDA-Public Use
  Company Number: US-TYCO HEALTHCARE/MALLINCKRODT-T200801493

PATIENT

DRUGS (6)
  1. THALLOUS CHLORIDE TL 201 [Suspect]
     Indication: SCAN MYOCARDIAL PERFUSION
     Dosage: UNK, SINGLE
     Route: 042
     Dates: start: 20080911, end: 20080911
  2. CONTRAST MEDIA [Suspect]
     Indication: COMPUTERISED TOMOGRAM THORAX
     Route: 042
     Dates: start: 20080912, end: 20080912
  3. CALCIUM [Concomitant]
     Indication: CALCIUM DEFICIENCY
     Dosage: UNK, QD
     Route: 048
  4. SYNTHROID [Concomitant]
     Indication: HYPOTHYROIDISM
     Dosage: 200 UG, QD
     Route: 048
  5. HYDROCHLOROTHIAZIDE [Concomitant]
     Indication: HYPERTENSION
     Dosage: 25 MG, QD
     Route: 048
  6. AMBIEN [Concomitant]
     Indication: SLEEP DISORDER
     Dosage: 10 MG, HS
     Route: 048

REACTIONS (2)
  - HYPOPARATHYROIDISM [None]
  - TETANY [None]
